FAERS Safety Report 10163233 (Version 1)
Quarter: 2014Q2

REPORT INFORMATION
  Report Type: Spontaneous
  Country: US (occurrence: US)
  Receive Date: 20140509
  Receipt Date: 20140509
  Transmission Date: 20141212
  Serious: Yes (Other)
  Sender: FDA-Public Use
  Company Number: US-BAYER-2014-066386

PATIENT
  Age: 55 Year
  Sex: Female
  Weight: 81.63 kg

DRUGS (8)
  1. BETASERON [Suspect]
     Dosage: 0.25 ML, QOD
     Route: 058
     Dates: start: 2002
  2. AMPYRA [Suspect]
     Dosage: UNK
  3. GABAPENTIN [Concomitant]
  4. ALBUTEROL [Concomitant]
  5. NEXIUM [Concomitant]
  6. ALBUTEROL [Concomitant]
  7. BENICAR [Concomitant]
  8. MAGNESIUM [Concomitant]

REACTIONS (8)
  - Abasia [Unknown]
  - Fatigue [Unknown]
  - Multiple sclerosis relapse [Unknown]
  - Fatigue [Unknown]
  - Hypothyroidism [Unknown]
  - Spinal laminectomy [Unknown]
  - Feeling cold [Unknown]
  - Inappropriate schedule of drug administration [None]
